FAERS Safety Report 8113390-3 (Version None)
Quarter: 2012Q1

REPORT INFORMATION
  Report Type: 
  Country: None (occurrence: None)
  Receive Date: 20120203
  Receipt Date: 20120130
  Transmission Date: 20120608
  Serious: Yes (Life-Threatening, Hospitalization)
  Sender: FDA-Public Use
  Company Number: PHHY2012AT007940

PATIENT
  Age: 38 Year
  Sex: Female

DRUGS (11)
  1. CLOZAPINE [Suspect]
     Dosage: 100 MG, UNK
     Dates: start: 20111222, end: 20111223
  2. SEROQUEL [Concomitant]
     Dosage: 200 MG, UNK
  3. CLOZAPINE [Suspect]
     Dosage: 50 MG, UNK
     Dates: start: 20111221, end: 20111222
  4. CLOZAPINE [Suspect]
     Dosage: 75 MG, UNK
     Dates: start: 20111228
  5. LITHIUM CARBONATE [Suspect]
     Dosage: 900 MG, TID
     Dates: start: 20111214
  6. CLOZAPINE [Suspect]
     Dosage: 200 MG
     Dates: start: 20100101
  7. CLOZAPINE [Suspect]
     Dosage: 150 MG
     Dates: start: 20111223, end: 20111227
  8. DEPAKENE [Concomitant]
     Dosage: 1000 MG/ DAILY
     Dates: start: 20111214
  9. LORAZEPAM [Concomitant]
     Dosage: 4.5 MG/DAILY
     Dates: start: 20111214
  10. LORAZEPAM [Concomitant]
     Dosage: UNK UKN, UNK
     Dates: start: 20120105
  11. HALDOL [Suspect]
     Dosage: 10 MG
     Dates: start: 20111214, end: 20111221

REACTIONS (4)
  - PLEUROTHOTONUS [None]
  - POSTURE ABNORMAL [None]
  - DYSTONIA [None]
  - BLOOD CREATINE PHOSPHOKINASE INCREASED [None]
